FAERS Safety Report 9686217 (Version 1)
Quarter: 2013Q4

REPORT INFORMATION
  Report Type: Spontaneous
  Country: CH (occurrence: CH)
  Receive Date: 20131113
  Receipt Date: 20131113
  Transmission Date: 20140711
  Serious: Yes (Hospitalization)
  Sender: FDA-Public Use
  Company Number: PHHY2013CH127131

PATIENT
  Age: 77 Year
  Sex: Female

DRUGS (9)
  1. DIGOXIN [Suspect]
     Indication: CARDIAC FAILURE
     Dosage: 0.25 MG, QD
     Route: 048
     Dates: start: 20130410, end: 20130430
  2. MARCOUMAR [Concomitant]
     Indication: ATRIAL FIBRILLATION
     Dosage: 3 MG, UNK
     Route: 048
  3. BILOL COMP [Concomitant]
     Dosage: 0.5 DF (10MG BISOPROLOL/25 MG HCT), UKN
     Route: 048
  4. TORASEMID [Concomitant]
     Dosage: 0.5 DF (5MG), UNK
     Route: 048
  5. EXFORGE [Concomitant]
     Dosage: 1 DF, BID
     Route: 048
     Dates: end: 20130430
  6. EUTIROX [Concomitant]
     Indication: HYPOTHYROIDISM
     Dosage: 1 DF (0.1 MG), QD
     Route: 048
  7. PANTOZOL [Concomitant]
     Dosage: 20 MG, QD
     Route: 048
  8. CLEXANE [Concomitant]
     Indication: ATRIAL FIBRILLATION
     Dosage: UNK UKN, UNK
     Route: 058
     Dates: start: 20130425
  9. CLEXANE [Concomitant]
     Indication: ATRIAL FLUTTER

REACTIONS (9)
  - Bradycardia [Unknown]
  - Hypotension [Unknown]
  - Drug level increased [Unknown]
  - Medication error [Unknown]
  - Chromatopsia [Unknown]
  - Asthenia [Unknown]
  - Dizziness [Unknown]
  - Fatigue [Unknown]
  - Decreased appetite [Unknown]
